FAERS Safety Report 19139261 (Version 5)
Quarter: 2021Q2

REPORT INFORMATION
  Report Type: Spontaneous
  Country: US (occurrence: US)
  Receive Date: 20210415
  Receipt Date: 20210429
  Transmission Date: 20210717
  Serious: Yes (Hospitalization, Other)
  Sender: FDA-Public Use
  Company Number: US-009507513-2104USA002068

PATIENT
  Age: 71 Year
  Sex: Male

DRUGS (18)
  1. QVAR [Concomitant]
     Active Substance: BECLOMETHASONE DIPROPIONATE
  2. VITAMINS (UNSPECIFIED) [Concomitant]
     Active Substance: VITAMINS
  3. PROVENTIL [Suspect]
     Active Substance: ALBUTEROL
     Indication: PULMONARY FIBROSIS
     Dosage: 4 SPRAYS EVERY 4 HOURS AS NEEDED
     Route: 055
     Dates: start: 2003
  4. PROVENTIL [Suspect]
     Active Substance: ALBUTEROL
     Dosage: UNK
     Route: 055
  5. FLUTICASONE. [Concomitant]
     Active Substance: FLUTICASONE
  6. ATORVASTATIN [Concomitant]
     Active Substance: ATORVASTATIN
  7. PROVENTIL [Suspect]
     Active Substance: ALBUTEROL
     Indication: PULMONARY FIBROSIS
     Dosage: 4 SPRAYS EVERY 4 HOURS AS NEEDED
     Route: 055
  8. PROVENTIL [Suspect]
     Active Substance: ALBUTEROL
     Indication: PULMONARY FIBROSIS
     Dosage: 4 SPRAYS EVERY 4 HOURS AS NEEDED
     Route: 055
     Dates: start: 202103
  9. ASPIRIN. [Concomitant]
     Active Substance: ASPIRIN
  10. PROVENTIL [Suspect]
     Active Substance: ALBUTEROL
     Indication: PULMONARY FIBROSIS
     Dosage: 4 SPRAYS EVERY 4 HOURS AS NEEDED
     Route: 055
  11. SEREVENT DISKUS [Concomitant]
     Active Substance: SALMETEROL XINAFOATE
  12. PROVENTIL [Suspect]
     Active Substance: ALBUTEROL
     Indication: PULMONARY FIBROSIS
     Dosage: 4 SPRAYS EVERY 4 HOURS AS NEEDED
     Route: 055
  13. ACTIFED (ACETAMINOPHEN (+) PSEUDOEPHEDRINE HYDROCHLORIDE (+) TRIPROLID [Concomitant]
  14. ATROVENT [Concomitant]
     Active Substance: IPRATROPIUM BROMIDE
  15. METOPROLOL. [Concomitant]
     Active Substance: METOPROLOL
  16. METFORMIN [Concomitant]
     Active Substance: METFORMIN HYDROCHLORIDE
  17. NAPROXEN SODIUM. [Concomitant]
     Active Substance: NAPROXEN SODIUM
  18. PHENYLEPHRINE [Concomitant]
     Active Substance: PHENYLEPHRINE HYDROCHLORIDE

REACTIONS (15)
  - Hypogeusia [Unknown]
  - Device use issue [Unknown]
  - Incorrect dose administered by device [Unknown]
  - Ageusia [Unknown]
  - Product packaging quantity issue [Unknown]
  - Device delivery system issue [Unknown]
  - Pulmonary fibrosis [Recovered/Resolved]
  - Wrong technique in device usage process [Unknown]
  - Product design issue [Unknown]
  - Therapeutic product effect decreased [Unknown]
  - Overdose [Unknown]
  - Illness [Unknown]
  - Cardiac disorder [Unknown]
  - Poor quality device used [Unknown]
  - Heart rate increased [Unknown]

NARRATIVE: CASE EVENT DATE: 2003
